FAERS Safety Report 19106572 (Version 2)
Quarter: 2021Q2

REPORT INFORMATION
  Report Type: Other
  Country: PT (occurrence: PT)
  Receive Date: 20210407
  Receipt Date: 20210416
  Transmission Date: 20210717
  Serious: Yes (Other)
  Sender: FDA-Public Use
  Company Number: PT-CELLTRION INC.-2021PT004422

PATIENT

DRUGS (5)
  1. RITUXIMAB (UNKNOWN) [Suspect]
     Active Substance: RITUXIMAB
     Indication: CHRONIC LYMPHOCYTIC LEUKAEMIA
     Dosage: UNK
     Route: 065
     Dates: start: 2020, end: 20201210
  2. VENCLYXTO [Suspect]
     Active Substance: VENETOCLAX
     Indication: CHRONIC LYMPHOCYTIC LEUKAEMIA
     Dosage: UNK (STOP DATE: 2020)
     Route: 048
     Dates: start: 20200531
  3. VENCLYXTO [Suspect]
     Active Substance: VENETOCLAX
     Dosage: UNK (STOP DATE: 2020)
     Route: 048
     Dates: start: 20200531
  4. VENCLYXTO [Suspect]
     Active Substance: VENETOCLAX
     Dosage: 100 MG
     Route: 048
     Dates: start: 20201118, end: 20201210
  5. VENCLYXTO [Suspect]
     Active Substance: VENETOCLAX
     Dosage: 100 MG
     Route: 048
     Dates: start: 20201118, end: 20201210

REACTIONS (7)
  - Pyrexia [Not Recovered/Not Resolved]
  - Decreased appetite [Unknown]
  - Hodgkin^s disease [Not Recovered/Not Resolved]
  - Tumour lysis syndrome [Unknown]
  - Neutropenia [Recovered/Resolved]
  - Cytopenia [Unknown]
  - Pneumonia [Not Recovered/Not Resolved]

NARRATIVE: CASE EVENT DATE: 2020
